FAERS Safety Report 10003962 (Version 1)
Quarter: 2014Q1

REPORT INFORMATION
  Report Type: Spontaneous
  Country: US (occurrence: US)
  Receive Date: 20140312
  Receipt Date: 20140312
  Transmission Date: 20141002
  Serious: No
  Sender: FDA-Public Use
  Company Number: US-009507513-2011SP057473

PATIENT
  Age: 2 Year
  Sex: Male
  Weight: 16.33 kg

DRUGS (2)
  1. CLARITIN CHEWABLE TABLETS [Suspect]
     Dosage: 5 MG, HS
     Route: 048
     Dates: start: 201106
  2. CLARITIN CHEWABLE TABLETS [Suspect]
     Dosage: 10 MG, HS
     Route: 048
     Dates: start: 20111206

REACTIONS (1)
  - Overdose [Recovered/Resolved]
